FAERS Safety Report 6243502-8 (Version None)
Quarter: 2009Q2

REPORT INFORMATION
  Report Type: 
  Country: None (occurrence: None)
  Receive Date: 20090624
  Receipt Date: 20090616
  Transmission Date: 20091009
  Serious: Yes (Hospitalization)
  Sender: FDA-Public Use
  Company Number: FR-TEVA-199119USA

PATIENT
  Sex: Female

DRUGS (8)
  1. BISELECT [Suspect]
     Indication: CARDIAC FAILURE
     Dosage: 1 DOSAGE FORS (1 IN 1 DAY)
     Route: 048
     Dates: start: 20080301
  2. CANDESARTAN CILEXETIL [Concomitant]
  3. OMEPRAZOLE [Concomitant]
  4. ACENOCOUMAROL [Concomitant]
  5. ALLOPURINOL [Concomitant]
  6. DIGOXIN [Concomitant]
  7. TEMAZEPAM [Concomitant]
  8. FUROSEMIDE [Concomitant]

REACTIONS (1)
  - LUPUS-LIKE SYNDROME [None]
